FAERS Safety Report 25236172 (Version 1)
Quarter: 2025Q2

REPORT INFORMATION
  Report Type: Spontaneous
  Country: ES (occurrence: ES)
  Receive Date: 20250424
  Receipt Date: 20250424
  Transmission Date: 20250716
  Serious: Yes (Other)
  Sender: MYLAN
  Company Number: ES-AMGEN-ESPSP2024235243

PATIENT
  Age: 73 Year
  Sex: Female

DRUGS (12)
  1. LENALIDOMIDE [Suspect]
     Active Substance: LENALIDOMIDE
     Indication: Plasma cell myeloma
  2. KYPROLIS [Suspect]
     Active Substance: CARFILZOMIB
     Indication: Plasma cell myeloma
  3. ISATUXIMAB [Suspect]
     Active Substance: ISATUXIMAB
     Indication: Plasma cell myeloma
  4. DEXAMETHASONE [Suspect]
     Active Substance: DEXAMETHASONE
     Indication: Plasma cell myeloma
  5. PANTOPRAZOLE [Concomitant]
     Active Substance: PANTOPRAZOLE
  6. Salofalk [Concomitant]
  7. CALCIFEDIOL [Concomitant]
     Active Substance: CALCIFEDIOL
  8. CALCIUM [Concomitant]
     Active Substance: CALCIUM
  9. CHOLESTYRAMINE [Concomitant]
     Active Substance: CHOLESTYRAMINE
  10. ACYCLOVIR [Concomitant]
     Active Substance: ACYCLOVIR
  11. FENTANYL [Concomitant]
     Active Substance: FENTANYL
  12. Serc [Concomitant]

REACTIONS (3)
  - Thrombotic microangiopathy [Unknown]
  - Renal failure [Recovering/Resolving]
  - Off label use [Unknown]

NARRATIVE: CASE EVENT DATE: 20241002
